FAERS Safety Report 9876246 (Version 1)
Quarter: 2014Q1

REPORT INFORMATION
  Report Type: Spontaneous
  Country: US (occurrence: None)
  Receive Date: 20140205
  Receipt Date: 20140205
  Transmission Date: 20141002
  Serious: No
  Sender: FDA-Public Use
  Company Number: None

PATIENT
  Age: 26 Year
  Sex: Female
  Weight: 47.63 kg

DRUGS (6)
  1. ZYPREXA [Suspect]
     Indication: HUNTINGTON^S DISEASE
  2. REMERON [Suspect]
     Indication: HUNTINGTON^S DISEASE
  3. DEPAKOTE [Concomitant]
  4. NEURONTIN [Concomitant]
  5. ATIVAN [Concomitant]
  6. TRAZADONE [Concomitant]

REACTIONS (6)
  - Weight decreased [None]
  - Fall [None]
  - Head injury [None]
  - Laceration [None]
  - Crying [None]
  - Fatigue [None]
